FAERS Safety Report 9256030 (Version 1)
Quarter: 2013Q2

REPORT INFORMATION
  Report Type: Spontaneous
  Country: US (occurrence: US)
  Receive Date: 20130425
  Receipt Date: 20130425
  Transmission Date: 20140414
  Serious: Yes (Other)
  Sender: FDA-Public Use
  Company Number: US-B.I. PHARMACEUTICALS,INC./RIDGEFIELD-2013-BI-10475BP

PATIENT
  Age: 55 Year
  Sex: Female

DRUGS (12)
  1. TRADJENTA [Suspect]
     Indication: TYPE 2 DIABETES MELLITUS
     Dosage: 5 MG
     Route: 048
     Dates: start: 2013, end: 201303
  2. METFORMIN [Concomitant]
  3. POTASSIUM [Concomitant]
  4. HYZAAR [Concomitant]
  5. LASIX [Concomitant]
  6. GLYBURIDE [Concomitant]
  7. ASPIRIN [Concomitant]
  8. ZOCOR [Concomitant]
  9. ULORIC [Concomitant]
  10. BUSPIRONE [Concomitant]
  11. ADVAIR [Concomitant]
  12. LEVIMIR [Concomitant]

REACTIONS (1)
  - Pancreatitis [Recovered/Resolved]
